FAERS Safety Report 15716123 (Version 1)
Quarter: 2018Q4

REPORT INFORMATION
  Report Type: Spontaneous
  Country: US (occurrence: US)
  Receive Date: 20181213
  Receipt Date: 20181213
  Transmission Date: 20190205
  Serious: No
  Sender: FDA-Public Use
  Company Number: US-ELI_LILLY_AND_COMPANY-US201812004718

PATIENT
  Sex: Male

DRUGS (1)
  1. TRULICITY [Suspect]
     Active Substance: DULAGLUTIDE
     Indication: PRODUCT USED FOR UNKNOWN INDICATION
     Dosage: 0.75 MG, UNKNOWN
     Route: 065

REACTIONS (7)
  - Accidental underdose [Unknown]
  - Product dose omission [Unknown]
  - Product storage error [Unknown]
  - Injection site pain [Unknown]
  - Nausea [Recovered/Resolved]
  - Lethargy [Unknown]
  - Anxiety [Recovered/Resolved]
